FAERS Safety Report 13069463 (Version 5)
Quarter: 2018Q2

REPORT INFORMATION
  Report Type: Spontaneous
  Country: US (occurrence: US)
  Receive Date: 20161228
  Receipt Date: 20180402
  Transmission Date: 20180711
  Serious: Yes (Other)
  Sender: FDA-Public Use
  Company Number: US-PFIZER INC-2016499111

PATIENT
  Age: 81 Year
  Sex: Female

DRUGS (20)
  1. LYRICA [Suspect]
     Active Substance: PREGABALIN
     Indication: NEUROPATHY PERIPHERAL
     Dosage: 150 MG, 3X/DAY
     Route: 048
     Dates: start: 20161019
  2. VITAMIN D [Concomitant]
     Active Substance: CHOLECALCIFEROL
     Dosage: 1 DF, MONTHLY
     Route: 048
  3. COMPAZINE [Concomitant]
     Active Substance: PROCHLORPERAZINE MALEATE
     Indication: NAUSEA
     Dosage: 10 MG, AS NEEDED (EVERY 6 HOURS)
     Route: 048
  4. LYRICA [Suspect]
     Active Substance: PREGABALIN
     Indication: POLYNEUROPATHY
     Dosage: UNK
     Dates: start: 2013
  5. LOMOTIL [Concomitant]
     Active Substance: ATROPINE SULFATE\DIPHENOXYLATE HYDROCHLORIDE
     Indication: DIARRHOEA
     Dosage: 1 DF, AS NEEDED [ATROPINE SULFATE: 2.5 MG ]/]DIPHENOXYLATE HYDROCHLORIDE: 0.025 MG], 3 TIMES DAILY
     Route: 048
  6. OCUVITE [Concomitant]
     Active Substance: VITAMINS
     Dosage: 1 DF, 2X/DAY
     Route: 048
  7. LYRICA [Suspect]
     Active Substance: PREGABALIN
     Dosage: 100 MG, UNK
  8. GLUCOSAMINE + CHONDROITIN [Concomitant]
     Dosage: 1 DF, 2X/DAY [GLUCOSAMINE: 500 MG] /[CHONDROITIN: 400 MG]
     Route: 048
  9. AMBIEN [Concomitant]
     Active Substance: ZOLPIDEM TARTRATE
     Indication: SLEEP DISORDER
     Dosage: 10 MG, AS NEEDED (NIGHTLY )
     Route: 048
  10. LYRICA [Suspect]
     Active Substance: PREGABALIN
     Indication: POLYNEUROPATHY IDIOPATHIC PROGRESSIVE
     Dosage: 150 MG, 3X/DAY
     Route: 048
     Dates: start: 20170707
  11. AUGMENTIN [Concomitant]
     Active Substance: AMOXICILLIN\CLAVULANATE POTASSIUM
     Dosage: 1 DF, 2X/DAY [AMOXICILLIN SODIUM: 875MG]/ [CLAVULANATE POTASSIUM: 125 MG]
     Route: 048
  12. EMLA [Concomitant]
     Active Substance: LIDOCAINE\PRILOCAINE
     Dosage: UNK, AS NEEDED (APPLY OVER MEDIPORT 60-90 MINUTES PRIOR TO CHEMOTHERAPY APPOINTMENT)
     Route: 061
  13. PRILOSEC [Concomitant]
     Active Substance: OMEPRAZOLE MAGNESIUM
     Dosage: 20 MG, 1X/DAY (EVERY MORNING ON EMPTY STOMACH)
     Route: 048
  14. NORCO [Concomitant]
     Active Substance: ACETAMINOPHEN\HYDROCODONE BITARTRATE
     Indication: PAIN
     Dosage: 1 DF, AS NEEDED, EVERY 8 HOURS [HYDROCODONE: 7.5 MG]/ [ACETAMINOPHEN: 325 MG]
     Route: 048
  15. URECHOLINE [Concomitant]
     Active Substance: BETHANECHOL CHLORIDE
     Dosage: 1 DF, 3X/DAY
     Route: 048
  16. VITAMIN B12 [Concomitant]
     Active Substance: CYANOCOBALAMIN
     Dosage: 1 ML, MONTHLY
     Route: 030
  17. MAGNESIUM OXIDE HEAVY W/MANGANESE AMINO ACID [Concomitant]
     Dosage: 300 MG, 3X/DAY
  18. ALDACTONE [Concomitant]
     Active Substance: SPIRONOLACTONE
     Dosage: 1 DF, 2X/DAY
     Route: 048
  19. CALCIUM CARBONATE AND VITAMIN D [Concomitant]
     Active Substance: CALCIUM CARBONATE\VITAMIN D
     Dosage: 1 DF, 2X/DAY [CALCIUM CARBONATE: 500 MG]/[COLECALCIFEROL: 200 UNIT]
     Route: 048
  20. ZOFRAN [Concomitant]
     Active Substance: ONDANSETRON HYDROCHLORIDE
     Indication: NAUSEA
     Dosage: 8 MG, AS NEEDED (EVERY 8 HOURS)
     Route: 048

REACTIONS (1)
  - Lung neoplasm malignant [Unknown]
